FAERS Safety Report 9429652 (Version 1)
Quarter: 2013Q3

REPORT INFORMATION
  Report Type: Spontaneous
  Country: US (occurrence: US)
  Receive Date: 20130730
  Receipt Date: 20130730
  Transmission Date: 20140515
  Serious: No
  Sender: FDA-Public Use
  Company Number: US-ABBOTT-13P-163-1070073-00

PATIENT
  Age: 62 Year
  Sex: Female
  Weight: 68.1 kg

DRUGS (15)
  1. NIASPAN (COATED) [Suspect]
     Indication: BLOOD CHOLESTEROL INCREASED
     Route: 048
     Dates: start: 20130311
  2. ASPIRIN [Concomitant]
     Indication: PROPHYLAXIS
     Dosage: 30 MINUTES BEFORE NIASPAN
     Dates: start: 20130326
  3. BENICAR [Concomitant]
     Indication: HYPERTENSION
  4. BUPROPION [Concomitant]
     Indication: DEPRESSION
  5. DEXILANT [Concomitant]
     Indication: GASTROOESOPHAGEAL REFLUX DISEASE
  6. JANUVIA [Concomitant]
     Indication: TYPE 2 DIABETES MELLITUS
  7. PROVIGIL [Concomitant]
     Indication: HYPERVIGILANCE
  8. OMNARIS [Concomitant]
     Indication: HYPERSENSITIVITY
  9. PIROXICAM [Concomitant]
     Indication: ARTHRITIS
  10. SEROQUEL [Concomitant]
     Indication: INSOMNIA
  11. ROPINIROLE [Concomitant]
     Indication: RESTLESS LEGS SYNDROME
  12. VIVELLE [Concomitant]
     Indication: HORMONE REPLACEMENT THERAPY
  13. WELLCHOL [Concomitant]
     Indication: BLOOD CHOLESTEROL INCREASED
  14. ZETIA [Concomitant]
     Indication: BLOOD CHOLESTEROL INCREASED
  15. AMBIEN [Concomitant]
     Indication: INSOMNIA

REACTIONS (4)
  - Urticaria [Recovered/Resolved]
  - Generalised erythema [Recovered/Resolved]
  - Pruritus generalised [Recovered/Resolved]
  - Hot flush [Recovered/Resolved]
